FAERS Safety Report 19067969 (Version 2)
Quarter: 2021Q2

REPORT INFORMATION
  Report Type: Spontaneous
  Country: US (occurrence: US)
  Receive Date: 20210329
  Receipt Date: 20210422
  Transmission Date: 20210717
  Serious: Yes (Other)
  Sender: FDA-Public Use
  Company Number: US-AKCEA THERAPEUTICS, INC.-2021IS001196

PATIENT
  Age: 68 Year
  Sex: Male

DRUGS (2)
  1. ISSD (INTEGRATED SYRINGE SAFETY DEVICE) [Suspect]
     Active Substance: DEVICE
  2. TEGSEDI [Suspect]
     Active Substance: INOTERSEN SODIUM
     Indication: PRODUCT USED FOR UNKNOWN INDICATION
     Route: 065

REACTIONS (3)
  - Deep vein thrombosis [Unknown]
  - Vaccination complication [Unknown]
  - Thrombosis [Unknown]
